FAERS Safety Report 6210809-X (Version None)
Quarter: 2009Q2

REPORT INFORMATION
  Report Type: 
  Country: None (occurrence: None)
  Receive Date: 20090601
  Receipt Date: 20090518
  Transmission Date: 20091009
  Serious: Yes (Hospitalization)
  Sender: FDA-Public Use
  Company Number: US-MYLANLABS-2009S1008794

PATIENT
  Age: 85 Year
  Sex: Female

DRUGS (13)
  1. ELAVIL [Suspect]
     Indication: DRUG USE FOR UNKNOWN INDICATION
  2. ASPIRIN [Suspect]
     Indication: DRUG USE FOR UNKNOWN INDICATION
  3. BUSPAR [Suspect]
     Indication: DRUG USE FOR UNKNOWN INDICATION
  4. LIBRAX [Suspect]
     Indication: DRUG USE FOR UNKNOWN INDICATION
  5. INDOMETHACIN [Suspect]
     Indication: DRUG USE FOR UNKNOWN INDICATION
  6. ZYVOX [Suspect]
     Indication: STAPHYLOCOCCAL INFECTION
  7. REMERON [Suspect]
     Indication: DRUG USE FOR UNKNOWN INDICATION
  8. NAPROSYN [Suspect]
     Indication: DRUG USE FOR UNKNOWN INDICATION
  9. PROCARDIA XL [Suspect]
     Indication: DRUG USE FOR UNKNOWN INDICATION
  10. PRILOSEC [Suspect]
     Indication: DRUG USE FOR UNKNOWN INDICATION
  11. PERPHENAZINE [Suspect]
     Indication: DRUG USE FOR UNKNOWN INDICATION
  12. CARAFATE [Suspect]
     Indication: DRUG USE FOR UNKNOWN INDICATION
  13. DETROL [Suspect]
     Indication: DRUG USE FOR UNKNOWN INDICATION

REACTIONS (4)
  - DELIRIUM [None]
  - DRUG INTERACTION [None]
  - GENERAL PHYSICAL HEALTH DETERIORATION [None]
  - URINARY RETENTION [None]
